FAERS Safety Report 16764392 (Version 2)
Quarter: 2019Q3

REPORT INFORMATION
  Report Type: Spontaneous
  Country: BR (occurrence: BR)
  Receive Date: 20190902
  Receipt Date: 20190923
  Transmission Date: 20191005
  Serious: Yes (Death)
  Sender: FDA-Public Use
  Company Number: PHHY2019BR203098

PATIENT
  Age: 43 Year
  Sex: Female

DRUGS (3)
  1. DEFERASIROX. [Suspect]
     Active Substance: DEFERASIROX
     Indication: SICKLE CELL DISEASE
     Dosage: 20 MG/KG, QD
     Route: 048
     Dates: start: 201401
  2. DEFERASIROX. [Suspect]
     Active Substance: DEFERASIROX
     Indication: IRON OVERLOAD
  3. ENALAPRIL [Concomitant]
     Active Substance: ENALAPRIL
     Indication: PRODUCT USED FOR UNKNOWN INDICATION
     Route: 065

REACTIONS (11)
  - Nausea [Fatal]
  - Fatigue [Fatal]
  - Jaundice [Fatal]
  - Mental disorder [Fatal]
  - Distributive shock [Fatal]
  - Multiple organ dysfunction syndrome [Fatal]
  - Cardiac arrest [Fatal]
  - Product use in unapproved indication [Unknown]
  - Drug-induced liver injury [Fatal]
  - Encephalopathy [Fatal]
  - Epistaxis [Fatal]
